FAERS Safety Report 11977886 (Version 1)
Quarter: 2016Q1

REPORT INFORMATION
  Report Type: Spontaneous
  Country: GB (occurrence: GB)
  Receive Date: 20160129
  Receipt Date: 20160129
  Transmission Date: 20160526
  Serious: Yes (Life-Threatening, Hospitalization)
  Sender: FDA-Public Use
  Company Number: GB-TEVA-627442ACC

PATIENT
  Age: 78 Year
  Sex: Male

DRUGS (8)
  1. BISOPROLOL [Concomitant]
     Active Substance: BISOPROLOL
  2. GLICLAZIDE [Concomitant]
     Active Substance: GLICLAZIDE
  3. PIOGLITAZONE. [Concomitant]
     Active Substance: PIOGLITAZONE
  4. DIGOXIN. [Concomitant]
     Active Substance: DIGOXIN
  5. DOXAZOSIN [Concomitant]
     Active Substance: DOXAZOSIN\DOXAZOSIN MESYLATE
  6. FUROSEMIDE. [Concomitant]
     Active Substance: FUROSEMIDE
  7. QUININE SULPHATE [Concomitant]
     Active Substance: QUININE SULFATE
  8. WARFARIN [Suspect]
     Active Substance: WARFARIN
     Indication: ATRIAL FIBRILLATION
     Dosage: AS PER INTERNATIONAL NORMALISED RATIO, RANGE 2-3.
     Route: 048

REACTIONS (2)
  - Intraventricular haemorrhage [Not Recovered/Not Resolved]
  - Hydrocephalus [Unknown]

NARRATIVE: CASE EVENT DATE: 20150111
